FAERS Safety Report 8073221-7 (Version None)
Quarter: 2012Q1

REPORT INFORMATION
  Report Type: 
  Country: None (occurrence: None)
  Receive Date: 20120126
  Receipt Date: 20120113
  Transmission Date: 20120608
  Serious: Yes (Other)
  Sender: FDA-Public Use
  Company Number: PHHY2011AU85556

PATIENT
  Sex: Male

DRUGS (2)
  1. SANDOSTATIN LAR [Suspect]
     Indication: CARCINOID SYNDROME
     Dosage: 30 MG, UNK
     Route: 030
     Dates: start: 20101201
  2. SANDOSTATIN LAR [Suspect]
     Dosage: 30 MG, UNK
     Route: 030
     Dates: start: 20110923

REACTIONS (11)
  - OCULAR HYPERAEMIA [None]
  - MEMORY IMPAIRMENT [None]
  - FLUSHING [None]
  - SWELLING FACE [None]
  - OEDEMA PERIPHERAL [None]
  - AMNESIA [None]
  - HEADACHE [None]
  - FEELING ABNORMAL [None]
  - SYNCOPE [None]
  - EYE SWELLING [None]
  - DIZZINESS [None]
